APPROVED DRUG PRODUCT: DICLOFENAC SODIUM
Active Ingredient: DICLOFENAC SODIUM
Strength: 75MG
Dosage Form/Route: TABLET, DELAYED RELEASE;ORAL
Application: A074391 | Product #003
Applicant: ROXANE LABORATORIES INC
Approved: Jun 29, 1995 | RLD: No | RS: No | Type: DISCN